FAERS Safety Report 8868768 (Version 1)
Quarter: 2012Q4

REPORT INFORMATION
  Report Type: 
  Country: US (occurrence: US)
  Receive Date: 20121024
  Receipt Date: 20121024
  Transmission Date: 20130627
  Serious: No
  Sender: FDA-Public Use
  Company Number: US-BAYER-2012-111694

PATIENT
  Age: 50 Year
  Sex: Male
  Weight: 77.1 kg

DRUGS (3)
  1. ALEVE CAPLET/TABLET,MIDOL EXTENDED RELIEF CAPLET [Suspect]
     Indication: GENERAL BODY PAIN
     Dosage: Other Frequency
     Dates: start: 2008
  2. ANTIHYPERTENSIVES [Concomitant]
  3. HIGH CHOLESTEROL MEDICATION [Concomitant]

REACTIONS (1)
  - Pain [None]
